FAERS Safety Report 8296618-9 (Version None)
Quarter: 2012Q2

REPORT INFORMATION
  Report Type: 
  Country: None (occurrence: None)
  Receive Date: 20120418
  Receipt Date: 20120418
  Transmission Date: 20120825
  Serious: Yes (Hospitalization)
  Sender: FDA-Public Use
  Company Number: None

PATIENT
  Age: 54 Year
  Sex: Male
  Weight: 127 kg

DRUGS (25)
  1. FERROUS SULFATE TAB [Concomitant]
     Route: 048
  2. LACTOBACILLUS [Concomitant]
     Route: 048
  3. SENNA [Concomitant]
  4. METOCLOPRAMIDE [Concomitant]
     Route: 048
  5. CYANOCOBALAMIN [Concomitant]
     Route: 030
  6. INSULIN GLARGINE [Concomitant]
     Route: 058
  7. LEVOTHYROXINE SODIUM [Concomitant]
     Route: 048
  8. OPICAL LIDOCAINE PATCH [Concomitant]
     Route: 061
  9. LISINOPRIL [Concomitant]
     Route: 048
  10. POLYETHYLENE GLYCOL [Concomitant]
     Route: 048
  11. OMEPRAZOLE [Concomitant]
     Route: 048
  12. INSULIN ASPART [Concomitant]
     Route: 058
  13. OXYBUTYNIN [Concomitant]
     Route: 048
  14. OXYCODONE HCL [Concomitant]
     Route: 048
  15. BACLOFEN [Concomitant]
     Route: 048
  16. OXYCODONE HCL EXTENDED-RELEASE [Concomitant]
     Route: 048
  17. ASPIRIN [Concomitant]
     Indication: CARDIAC DISORDER
     Dosage: 81 MG
     Route: 048
  18. POTASSIUM CHLORIDE [Concomitant]
     Route: 048
  19. IBUPROFEN [Suspect]
     Indication: PAIN
     Dosage: UNKNOWN
     Route: 048
  20. FUROSEMIDE [Concomitant]
     Route: 048
  21. BISACODYL SUPP [Concomitant]
  22. ASCORBIC ACID [Concomitant]
     Route: 048
  23. CLONAZEPAM [Concomitant]
     Route: 048
  24. METOPROLOL TARTRATE [Concomitant]
     Route: 048
  25. MULTI-VITAMIN [Concomitant]
     Route: 048

REACTIONS (1)
  - RECTAL HAEMORRHAGE [None]
